FAERS Safety Report 6934020-X (Version None)
Quarter: 2010Q3

REPORT INFORMATION
  Report Type: 
  Country: None (occurrence: None)
  Receive Date: 20100820
  Receipt Date: 20100810
  Transmission Date: 20110219
  Serious: Yes (Disabling, Other)
  Sender: FDA-Public Use
  Company Number: US-PFIZER INC-2010101208

PATIENT
  Sex: Female
  Weight: 40.36 kg

DRUGS (2)
  1. LYRICA [Suspect]
     Indication: FIBROMYALGIA
     Dosage: 150 MG, 2X/DAY
     Route: 048
     Dates: start: 20070101, end: 20100805
  2. SOMA [Concomitant]
     Indication: INTERVERTEBRAL DISC DISORDER
     Dosage: UNK

REACTIONS (3)
  - INTERVERTEBRAL DISC DISORDER [None]
  - SYNCOPE [None]
  - WITHDRAWAL SYNDROME [None]
